FAERS Safety Report 23742005 (Version 2)
Quarter: 2024Q2

REPORT INFORMATION
  Report Type: Spontaneous
  Country: GR (occurrence: GR)
  Receive Date: 20240415
  Receipt Date: 20240424
  Transmission Date: 20240716
  Serious: Yes (Hospitalization, Other)
  Sender: FDA-Public Use
  Company Number: GR-PFIZER INC-PV202400040053

PATIENT
  Age: 63 Year
  Sex: Female

DRUGS (7)
  1. LETROZOLE [Suspect]
     Active Substance: LETROZOLE
     Indication: Hormone receptor positive HER2 negative breast cancer
     Dosage: 2.5 MILLIGRAM, QD
     Route: 065
  2. LETROZOLE [Suspect]
     Active Substance: LETROZOLE
     Indication: Lymphangiosis carcinomatosa
  3. LETROZOLE [Suspect]
     Active Substance: LETROZOLE
     Indication: Lung disorder
  4. PALBOCICLIB [Suspect]
     Active Substance: PALBOCICLIB
     Indication: Hormone receptor positive HER2 negative breast cancer
     Dosage: 125 MILLIGRAM, CYCLE (DAY 1-21 OF EACH 28-DAY CYCLE)
     Route: 065
  5. PALBOCICLIB [Suspect]
     Active Substance: PALBOCICLIB
     Indication: Lung disorder
     Dosage: 100 MILLIGRAM, CYCLE (DAY 1-21 OF EACH 28-DAY CYCLE)
     Route: 065
  6. PALBOCICLIB [Suspect]
     Active Substance: PALBOCICLIB
     Indication: Lymphangiosis carcinomatosa
  7. DOCETAXEL [Concomitant]
     Active Substance: DOCETAXEL\DOCETAXEL ANHYDROUS
     Indication: Invasive ductal breast carcinoma
     Dosage: UNK
     Route: 065

REACTIONS (6)
  - Stress cardiomyopathy [Recovered/Resolved]
  - Cardiac failure acute [Recovered/Resolved]
  - Neutropenia [Unknown]
  - Nausea [Unknown]
  - Alopecia [Unknown]
  - Off label use [Unknown]
